FAERS Safety Report 9235984 (Version 1)
Quarter: 2013Q2

REPORT INFORMATION
  Report Type: Report from Study
  Country: CO (occurrence: CO)
  Receive Date: 20130417
  Receipt Date: 20130417
  Transmission Date: 20140414
  Serious: Yes (Death)
  Sender: FDA-Public Use
  Company Number: CO-SANOFI-AVENTIS-2013SA037989

PATIENT
  Age: 53 Year
  Sex: Male

DRUGS (2)
  1. INSULIN GLARGINE [Suspect]
     Indication: DIABETES MELLITUS
     Route: 058
     Dates: start: 201301, end: 201304
  2. INSULIN GLULISINE [Suspect]
     Indication: DIABETES MELLITUS
     Route: 058
     Dates: start: 201301, end: 201304

REACTIONS (1)
  - Acute myocardial infarction [Fatal]
